FAERS Safety Report 9563063 (Version 1)
Quarter: 2013Q3

REPORT INFORMATION
  Report Type: Spontaneous
  Country: US (occurrence: US)
  Receive Date: 20130927
  Receipt Date: 20130927
  Transmission Date: 20140515
  Serious: Yes (Other)
  Sender: FDA-Public Use
  Company Number: CHPA2013US014379

PATIENT
  Age: 72 Year
  Sex: Female

DRUGS (6)
  1. EXCEDRIN MIGRAINE [Suspect]
     Indication: MIGRAINE
     Dosage: 2-3 DF, QD IN MORNING
     Route: 048
  2. EXCEDRIN MIGRAINE [Suspect]
     Indication: BACK PAIN
  3. EXCEDRIN MIGRAINE [Suspect]
     Indication: TOOTHACHE
  4. EXCEDRIN ES BACK + BODY [Suspect]
     Indication: BACK PAIN
     Dosage: UNK, UNK
     Route: 048
  5. EXCEDRIN ES BACK + BODY [Suspect]
     Indication: MUSCULOSKELETAL PAIN
  6. IBUPROFEN [Suspect]
     Indication: TOOTHACHE
     Dosage: UNK, UNK

REACTIONS (8)
  - Toothache [Recovered/Resolved]
  - Disease recurrence [Unknown]
  - Malaise [Recovered/Resolved]
  - Feeling abnormal [Recovered/Resolved]
  - Therapeutic response unexpected [Unknown]
  - Incorrect dose administered [Unknown]
  - Drug ineffective for unapproved indication [Unknown]
  - Off label use [Unknown]
